FAERS Safety Report 9356957 (Version 2)
Quarter: 2013Q3

REPORT INFORMATION
  Report Type: Spontaneous
  Country: JP (occurrence: JP)
  Receive Date: 20130620
  Receipt Date: 20130705
  Transmission Date: 20140515
  Serious: Yes (Hospitalization)
  Sender: FDA-Public Use
  Company Number: JP-ASTRAZENECA-2013SE46803

PATIENT
  Age: 76 Year
  Sex: Male

DRUGS (7)
  1. NEXIUM [Suspect]
     Route: 048
     Dates: end: 20130529
  2. RENIVACE [Concomitant]
     Dosage: DOSE UNKNOWN
     Route: 065
  3. SIGMART [Concomitant]
     Dosage: DOSE UNKNOWN
     Route: 065
  4. LENDORMIN [Concomitant]
     Dosage: DOSE UNKNOWN
     Route: 065
  5. ZYLORIC [Concomitant]
     Dosage: DOSE UNKNOWN
     Route: 065
  6. BAYASPIRIN [Concomitant]
     Dosage: DOSE UNKNOWN
     Route: 065
  7. PLAVIX [Concomitant]
     Dosage: DOSE UNKNOWN
     Route: 065

REACTIONS (2)
  - Angina pectoris [Unknown]
  - Hyponatraemia [Not Recovered/Not Resolved]
